FAERS Safety Report 5463152-0 (Version None)
Quarter: 2007Q3

REPORT INFORMATION
  Report Type: 
  Country: None (occurrence: None)
  Receive Date: 20070920
  Receipt Date: 20070911
  Transmission Date: 20080115
  Serious: Yes (Hospitalization)
  Sender: FDA-Public Use
  Company Number: JP-ASTRAZENECA-2007AP04837

PATIENT
  Age: 14674 Day
  Sex: Female
  Weight: 45 kg

DRUGS (3)
  1. ZOLADEX [Suspect]
     Indication: ENDOMETRIOSIS
     Route: 058
     Dates: start: 20070712
  2. NASANYL [Concomitant]
     Indication: ENDOMETRIOSIS
     Route: 045
     Dates: start: 20070501
  3. PREDONINE [Concomitant]
     Indication: PUSTULAR PSORIASIS
     Route: 048

REACTIONS (2)
  - JAUNDICE [None]
  - MALAISE [None]
